FAERS Safety Report 15673819 (Version 9)
Quarter: 2021Q3

REPORT INFORMATION
  Report Type: Spontaneous
  Country: US (occurrence: US)
  Receive Date: 20181129
  Receipt Date: 20210830
  Transmission Date: 20211014
  Serious: Yes (Hospitalization, Other)
  Sender: FDA-Public Use
  Company Number: US-PFIZER INC-2018443406

PATIENT
  Age: 63 Year
  Sex: Female
  Weight: 79 kg

DRUGS (4)
  1. LYRICA [Suspect]
     Active Substance: PREGABALIN
     Indication: PAIN
  2. LYRICA [Suspect]
     Active Substance: PREGABALIN
     Indication: SCOLIOSIS SURGERY
  3. LYRICA [Suspect]
     Active Substance: PREGABALIN
     Indication: HYPOAESTHESIA
     Dosage: 150 MG, 2X/DAY, (EVERY 12 HOURS)
     Route: 048
     Dates: start: 201104
  4. LYRICA [Suspect]
     Active Substance: PREGABALIN
     Indication: NERVE INJURY

REACTIONS (14)
  - Spinal fracture [Unknown]
  - Back pain [Unknown]
  - Gait disturbance [Unknown]
  - Lung disorder [Unknown]
  - Back injury [Unknown]
  - Pain [Unknown]
  - Gastrooesophageal reflux disease [Unknown]
  - Multiple fractures [Unknown]
  - Pneumonia [Unknown]
  - Haemoptysis [Unknown]
  - Memory impairment [Unknown]
  - Pneumonia fungal [Unknown]
  - Back disorder [Unknown]
  - Scoliosis [Unknown]
